FAERS Safety Report 23668175 (Version 1)
Quarter: 2024Q1

REPORT INFORMATION
  Report Type: Spontaneous
  Country: JP (occurrence: JP)
  Receive Date: 20240325
  Receipt Date: 20240325
  Transmission Date: 20240410
  Serious: Yes (Other)
  Sender: FDA-Public Use
  Company Number: JP-RECORDATI-2023003466

PATIENT

DRUGS (7)
  1. OSILODROSTAT [Suspect]
     Active Substance: OSILODROSTAT
     Indication: Cortisol increased
     Dosage: 2 MILLIGRAM PER DAY
  2. OSILODROSTAT [Suspect]
     Active Substance: OSILODROSTAT
     Indication: Off label use
  3. LANREOTIDE [Suspect]
     Active Substance: LANREOTIDE
     Indication: Product used for unknown indication
     Dosage: UNK
  4. METYRAPONE [Concomitant]
     Active Substance: METYRAPONE
     Indication: Cortisol increased
     Dosage: 3500 MILLIGRAM PER DAY
  5. STREPTOZOCIN [Concomitant]
     Active Substance: STREPTOZOCIN
     Indication: Product used for unknown indication
     Dosage: 850 MILLIGRAM
  6. FLUOROURACIL [Concomitant]
     Active Substance: FLUOROURACIL
     Indication: Product used for unknown indication
     Dosage: 700 MILLIGRAM PER DAY
  7. EVEROLIMUS [Concomitant]
     Active Substance: EVEROLIMUS
     Indication: Product used for unknown indication
     Dosage: 10 MILLIGRAM

REACTIONS (3)
  - Metastases to lymph nodes [Unknown]
  - Metastasis [Unknown]
  - Off label use [Recovered/Resolved]
